FAERS Safety Report 7206766-X (Version None)
Quarter: 2010Q4

REPORT INFORMATION
  Report Type: 
  Country: None (occurrence: None)
  Receive Date: 20101217
  Receipt Date: 20101201
  Transmission Date: 20110411
  Serious: Yes (Other)
  Sender: FDA-Public Use
  Company Number: 1000017650

PATIENT
  Age: 49 Year
  Sex: Female

DRUGS (4)
  1. CELEXA [Suspect]
     Dosage: 10 MG (10 MG, 1 IN 1 D);
  2. EFFEXOR XR [Suspect]
     Dosage: 150 MG,
  3. VENLAFAXINE [Suspect]
  4. VIAGRA [Suspect]

REACTIONS (3)
  - ANORGASMIA [None]
  - HALLUCINATION, TACTILE [None]
  - VISUAL IMPAIRMENT [None]
